FAERS Safety Report 15036394 (Version 1)
Quarter: 2018Q2

REPORT INFORMATION
  Report Type: Spontaneous
  Country: FI (occurrence: FI)
  Receive Date: 20180620
  Receipt Date: 20180620
  Transmission Date: 20180711
  Serious: Yes (Life-Threatening)
  Sender: FDA-Public Use
  Company Number: FI-PURDUE PHARMA-GBR-2018-0056754

PATIENT
  Age: 75 Year
  Sex: Male
  Weight: 75 kg

DRUGS (18)
  1. OXANEST [Concomitant]
     Active Substance: OXYCODONE HYDROCHLORIDE
     Dosage: UNK 4-6 MG, PRN
     Route: 030
  2. ORLOC [Concomitant]
     Active Substance: BISOPROLOL FUMARATE
     Dosage: 5 MG, DAILY
     Route: 048
  3. OXYNORM [Suspect]
     Active Substance: OXYCODONE HYDROCHLORIDE
     Indication: PRODUCT USED FOR UNKNOWN INDICATION
     Dosage: 5 MG, UNK
     Route: 048
     Dates: end: 20150107
  4. MAREVAN [Suspect]
     Active Substance: WARFARIN SODIUM
     Indication: ATRIAL FIBRILLATION
     Dosage: 1 UNK, DAILY
     Route: 048
     Dates: start: 20150209
  5. AVODART [Concomitant]
     Active Substance: DUTASTERIDE
     Dosage: 0.5 MG, DAILY
     Route: 048
  6. OCTAPLEX                           /01275601/ [Concomitant]
     Route: 065
  7. KETIPINOR [Suspect]
     Active Substance: QUETIAPINE FUMARATE
     Indication: DELIRIUM
     Dosage: 25 MG, UNK (1-2 TABLETS IN THE EVENINGS)
     Route: 048
     Dates: end: 20150116
  8. MAREVAN [Suspect]
     Active Substance: WARFARIN SODIUM
     Dosage: 1 UNK, DAILY
     Route: 048
     Dates: end: 20150103
  9. PANACOD [Suspect]
     Active Substance: ACETAMINOPHEN\CODEINE PHOSPHATE
     Indication: PRODUCT USED FOR UNKNOWN INDICATION
     Dosage: 1 TABLET, PRN (MAX 3 TABLETS DAILY)
     Route: 048
  10. KEFEXIN [Concomitant]
     Active Substance: CEPHALEXIN
     Dosage: 1500 MG, DAILY
     Route: 048
     Dates: end: 20150119
  11. ATORVASTATIN [Concomitant]
     Active Substance: ATORVASTATIN
     Dosage: 10 MG, DAILY
     Route: 048
     Dates: end: 20150109
  12. TRAMAL [Suspect]
     Active Substance: TRAMADOL
     Indication: PAIN
     Dosage: 50 MG, UNK
     Route: 048
     Dates: end: 20150121
  13. KLEXANE [Concomitant]
     Active Substance: ENOXAPARIN
     Dosage: 20 MG, DAILY AT 20.00 PM
     Route: 058
  14. KLEXANE [Concomitant]
     Active Substance: ENOXAPARIN
     Dosage: 40 MG, DAILY AT 8.00 AM
     Route: 058
  15. OXYNORM [Suspect]
     Active Substance: OXYCODONE HYDROCHLORIDE
     Indication: PRODUCT USED FOR UNKNOWN INDICATION
     Dosage: 5 MG, PRN (STRENGHT 10MG/ML)
     Route: 048
  16. KETIPINOR [Suspect]
     Active Substance: QUETIAPINE FUMARATE
     Indication: PRODUCT USED FOR UNKNOWN INDICATION
     Dosage: 25 MG, DAILY
     Route: 048
     Dates: start: 20150119, end: 20150119
  17. KONAKION [Concomitant]
     Active Substance: PHYTONADIONE
     Route: 065
  18. PAMOL [Concomitant]
     Active Substance: ACETAMINOPHEN
     Dosage: 1500 MG, DAILY
     Route: 048

REACTIONS (5)
  - Abnormal behaviour [Recovered/Resolved with Sequelae]
  - Extradural haematoma [Recovering/Resolving]
  - Delirium [Recovered/Resolved with Sequelae]
  - Memory impairment [Recovered/Resolved with Sequelae]
  - Weight decreased [Recovered/Resolved with Sequelae]

NARRATIVE: CASE EVENT DATE: 20141230
